FAERS Safety Report 22310681 (Version 1)
Quarter: 2023Q2

REPORT INFORMATION
  Report Type: Spontaneous
  Country: JP (occurrence: JP)
  Receive Date: 20230511
  Receipt Date: 20230511
  Transmission Date: 20230721
  Serious: Yes (Other)
  Sender: FDA-Public Use
  Company Number: JP-SA-SAC20230511000246

PATIENT
  Age: 80 Year
  Sex: Male

DRUGS (1)
  1. OXALIPLATIN [Suspect]
     Active Substance: OXALIPLATIN
     Dosage: FORMULATION: INJECTION
     Route: 065

REACTIONS (1)
  - Neuropathy peripheral [Recovered/Resolved]
